FAERS Safety Report 4630923-X (Version None)
Quarter: 2005Q2

REPORT INFORMATION
  Report Type: 
  Country: None (occurrence: None)
  Receive Date: 20050407
  Receipt Date: 20050407
  Transmission Date: 20051028
  Serious: Yes (Other)
  Sender: FDA-Public Use
  Company Number: None

PATIENT
  Age: 48 Year
  Sex: Female
  Weight: 106 kg

DRUGS (5)
  1. ETANERCEPT [Suspect]
     Indication: DEAFNESS NEUROSENSORY
     Dosage: 50MG WEEKLY
  2. PREDNISONE [Concomitant]
  3. PREVACID [Concomitant]
  4. DETROL [Concomitant]
  5. ACTONEL [Concomitant]

REACTIONS (1)
  - DEAFNESS UNILATERAL [None]
